FAERS Safety Report 15134343 (Version 1)
Quarter: 2018Q3

REPORT INFORMATION
  Report Type: Spontaneous
  Country: JP (occurrence: JP)
  Receive Date: 20180712
  Receipt Date: 20180712
  Transmission Date: 20181010
  Serious: Yes (Hospitalization, Other)
  Sender: FDA-Public Use
  Company Number: JP-JNJFOC-20180626034

PATIENT
  Age: 52 Year
  Sex: Female
  Weight: 69 kg

DRUGS (1)
  1. TRAMADOL HYDROCHLORIDE AND ACETAMINOPHEN [Suspect]
     Active Substance: ACETAMINOPHEN\TRAMADOL HYDROCHLORIDE
     Indication: PRODUCT USED FOR UNKNOWN INDICATION
     Route: 048
     Dates: start: 20180117, end: 20180126

REACTIONS (2)
  - Eczema [Recovering/Resolving]
  - Face oedema [Recovering/Resolving]

NARRATIVE: CASE EVENT DATE: 20180127
